FAERS Safety Report 9444700 (Version 1)
Quarter: 2013Q3

REPORT INFORMATION
  Report Type: Spontaneous
  Country: FR (occurrence: FR)
  Receive Date: 20130807
  Receipt Date: 20130807
  Transmission Date: 20140515
  Serious: Yes (Death, Hospitalization)
  Sender: FDA-Public Use
  Company Number: FR-PFIZER INC-2013224605

PATIENT
  Age: 59 Year
  Sex: Male

DRUGS (5)
  1. RAPAMUNE [Suspect]
     Dosage: 2 MG, 1X/DAY
     Dates: start: 2009
  2. CELLCEPT [Suspect]
     Dosage: 500 MG, 1X/DAY
     Dates: start: 2009
  3. PREDNISONE [Concomitant]
     Dosage: 8 MG, DAILY
  4. BRICANYL [Concomitant]
  5. ZOPICLONE [Concomitant]

REACTIONS (2)
  - Death [Fatal]
  - Primary mediastinal large B-cell lymphoma recurrent [Not Recovered/Not Resolved]
